FAERS Safety Report 6722180-5 (Version None)
Quarter: 2010Q2

REPORT INFORMATION
  Report Type: 
  Country: None (occurrence: None)
  Receive Date: 20100512
  Receipt Date: 20100506
  Transmission Date: 20101027
  Serious: Yes (Life-Threatening, Hospitalization, Other)
  Sender: FDA-Public Use
  Company Number: US-MERCK-1002USA02298

PATIENT
  Age: 59 Year
  Sex: Female
  Weight: 86 kg

DRUGS (3)
  1. JANUVIA [Suspect]
     Indication: DIABETES MELLITUS
     Route: 048
     Dates: start: 20080101, end: 20090401
  2. JANUVIA [Suspect]
     Route: 048
     Dates: start: 20090401, end: 20091001
  3. JANUVIA [Suspect]
     Route: 048
     Dates: start: 20091001

REACTIONS (8)
  - DRUG INEFFECTIVE [None]
  - DYSPHONIA [None]
  - HUNGER [None]
  - HYPERGLYCAEMIA [None]
  - NASAL CONGESTION [None]
  - PRODUCT COUNTERFEIT [None]
  - WEIGHT DECREASED [None]
  - WEIGHT INCREASED [None]
